FAERS Safety Report 6157116-1 (Version None)
Quarter: 2009Q2

REPORT INFORMATION
  Report Type: 
  Country: None (occurrence: None)
  Receive Date: 20090416
  Receipt Date: 20090408
  Transmission Date: 20091009
  Serious: No
  Sender: FDA-Public Use
  Company Number: US-B.I. PHARMACEUTICALS,INC./RIDGEFIELD-2009-BP-04385BP

PATIENT
  Sex: Female

DRUGS (12)
  1. ATROVENT HFA [Suspect]
     Indication: BRONCHIECTASIS
     Route: 055
     Dates: start: 20040101, end: 20090401
  2. ATROVENT HFA [Suspect]
     Indication: CHRONIC OBSTRUCTIVE PULMONARY DISEASE
     Route: 055
     Dates: start: 20090408
  3. XOPENEX [Suspect]
     Indication: BRONCHIECTASIS
     Dates: start: 20090401
  4. XOPENEX [Suspect]
     Indication: CHRONIC OBSTRUCTIVE PULMONARY DISEASE
  5. LOPRESSOR [Concomitant]
     Indication: ATRIAL FIBRILLATION
  6. LOPRESSOR [Concomitant]
     Indication: HEART RATE INCREASED
  7. COUMADIN [Concomitant]
     Indication: ATRIAL FIBRILLATION
  8. COUMADIN [Concomitant]
     Indication: HEART RATE INCREASED
  9. DILTIAZEM [Concomitant]
     Indication: ATRIAL FIBRILLATION
  10. DILTIAZEM [Concomitant]
     Indication: HEART RATE INCREASED
  11. RYTHMOL [Concomitant]
     Indication: ATRIAL FIBRILLATION
  12. RYTHMOL [Concomitant]
     Indication: HEART RATE INCREASED

REACTIONS (3)
  - DRUG EFFECT DECREASED [None]
  - DRY MOUTH [None]
  - PRODUCTIVE COUGH [None]
